FAERS Safety Report 24122259 (Version 2)
Quarter: 2024Q3

REPORT INFORMATION
  Report Type: Spontaneous
  Country: JP (occurrence: JP)
  Receive Date: 20240722
  Receipt Date: 20240905
  Transmission Date: 20241017
  Serious: Yes (Death, Hospitalization, Other)
  Sender: MERCK
  Company Number: JP-MSD-2405JPN000761J

PATIENT
  Age: 19 Year
  Sex: Female
  Weight: 36 kg

DRUGS (9)
  1. KEYTRUDA [Suspect]
     Active Substance: PEMBROLIZUMAB
     Indication: Head and neck cancer
     Dosage: 200 MILLIGRAM, Q3W
     Route: 041
     Dates: start: 20200728, end: 20201110
  2. ELTROMBOPAG OLAMINE [Concomitant]
     Active Substance: ELTROMBOPAG OLAMINE
     Indication: Congenital aplastic anaemia
     Dosage: 100 MILLIGRAM, QD
     Route: 065
     Dates: start: 20200821
  3. SULFAMETHOXAZOLE\TRIMETHOPRIM [Concomitant]
     Active Substance: SULFAMETHOXAZOLE\TRIMETHOPRIM
     Indication: Prophylaxis
     Dosage: EVERY OTHER DAY AT 1T IN THE MORNING AND 1T IN THE EVENING
     Route: 065
     Dates: start: 20200827
  4. ACETAMINOPHEN [Concomitant]
     Active Substance: ACETAMINOPHEN
     Indication: Pain
     Dosage: 400 MILLIGRAM, QID
     Route: 065
     Dates: start: 20200622
  5. ITRACONAZOLE [Concomitant]
     Active Substance: ITRACONAZOLE
     Indication: Oral candidiasis
     Dosage: 100 MILLIGRAM, BID
     Route: 065
     Dates: start: 20200826
  6. MORPHINE HYDROCHLORIDE [Concomitant]
     Active Substance: MORPHINE HYDROCHLORIDE
     Indication: Pain
     Dosage: UNK UNK, PRN
     Route: 065
     Dates: start: 20200813
  7. CELECOXIB [Concomitant]
     Active Substance: CELECOXIB
     Indication: Pain
     Dosage: 100 MILLIGRAM, BID
     Route: 065
     Dates: start: 20201003
  8. FENTANYL [Concomitant]
     Active Substance: FENTANYL\FENTANYL CITRATE
     Indication: Pain
     Dosage: 5 MILLIGRAM, QD
     Dates: start: 20201107
  9. RIVOTRIL [Concomitant]
     Active Substance: CLONAZEPAM
     Indication: Pain
     Dosage: 0.5 MILLIGRAM, QD
     Route: 065
     Dates: start: 20210402

REACTIONS (5)
  - Immune-mediated enterocolitis [Recovered/Resolved]
  - Diarrhoea [Recovered/Resolved]
  - Death [Fatal]
  - Neuralgia [Recovering/Resolving]
  - Nausea [Recovering/Resolving]

NARRATIVE: CASE EVENT DATE: 20201109
